FAERS Safety Report 4847880-3 (Version None)
Quarter: 2005Q4

REPORT INFORMATION
  Report Type: 
  Country: None (occurrence: None)
  Receive Date: 20051207
  Receipt Date: 20051207
  Transmission Date: 20060501
  Serious: No
  Sender: FDA-Public Use
  Company Number: None

PATIENT
  Age: 27 Year
  Sex: Male
  Weight: 86.1834 kg

DRUGS (1)
  1. ALDARA [Suspect]
     Indication: CONDYLOMA ACUMINATUM
     Dosage: 0.25 MG   3X/WK  TOP
     Route: 061
     Dates: start: 20051117, end: 20051206

REACTIONS (4)
  - APPLICATION SITE DRYNESS [None]
  - APPLICATION SITE ERYTHEMA [None]
  - BACK PAIN [None]
  - MYALGIA [None]
